FAERS Safety Report 7380897-6 (Version None)
Quarter: 2011Q1

REPORT INFORMATION
  Report Type: 
  Country: None (occurrence: None)
  Receive Date: 20110329
  Receipt Date: 20110314
  Transmission Date: 20110831
  Serious: Yes (Other)
  Sender: FDA-Public Use
  Company Number: PHHY2011US20755

PATIENT
  Sex: Female

DRUGS (2)
  1. RITALIN [Suspect]
     Dosage: 10 MG, QID
  2. RESTORIL [Concomitant]

REACTIONS (9)
  - VERBAL ABUSE [None]
  - AMNESIA [None]
  - CONCUSSION [None]
  - MOVEMENT DISORDER [None]
  - LOGORRHOEA [None]
  - FALL [None]
  - DISORIENTATION [None]
  - TRAUMATIC BRAIN INJURY [None]
  - FATIGUE [None]
